FAERS Safety Report 6742103-2 (Version None)
Quarter: 2010Q2

REPORT INFORMATION
  Report Type: 
  Country: None (occurrence: None)
  Receive Date: 20100526
  Receipt Date: 20100519
  Transmission Date: 20101027
  Serious: Yes (Other)
  Sender: FDA-Public Use
  Company Number: PHHY2010BR32906

PATIENT
  Age: 58 Year
  Sex: Male
  Weight: 130 kg

DRUGS (2)
  1. DIOVAN [Suspect]
     Indication: HYPERTENSION
     Dosage: 320 MG, 1 TABLET AT NIGHT
     Route: 048
  2. INDAPEN [Concomitant]
     Indication: OEDEMA
     Dosage: 1 TABLET A DAY
     Route: 048

REACTIONS (2)
  - BLOOD PRESSURE INCREASED [None]
  - HEART RATE INCREASED [None]
